FAERS Safety Report 4450882-2 (Version None)
Quarter: 2004Q3

REPORT INFORMATION
  Report Type: 
  Country: None (occurrence: None)
  Receive Date: 20040916
  Receipt Date: 20011016
  Transmission Date: 20050211
  Serious: Yes (Other)
  Sender: FDA-Public Use
  Company Number: US-BRISTOL-MYERS SQUIBB COMPANY-11542883

PATIENT
  Age: 47 Year
  Sex: Female

DRUGS (2)
  1. STADOL [Suspect]
     Indication: MIGRAINE
     Route: 045
     Dates: start: 19981001
  2. STADOL [Suspect]
     Indication: MIGRAINE
     Dosage: DURATION OF THERAPY: 6 YEARS/ CURRENT. / INJECTIONS. ROUTE: IM AND IV
     Route: 030
     Dates: start: 19950101

REACTIONS (2)
  - DEPENDENCE [None]
  - DRUG WITHDRAWAL SYNDROME [None]
